FAERS Safety Report 24943167 (Version 1)
Quarter: 2025Q1

REPORT INFORMATION
  Report Type: Spontaneous
  Country: US (occurrence: US)
  Receive Date: 20250207
  Receipt Date: 20250207
  Transmission Date: 20250409
  Serious: Yes (Other)
  Sender: TEVA
  Company Number: US-TEVA-VS-3293009

PATIENT
  Age: 76 Year
  Sex: Female

DRUGS (1)
  1. QVAR [Suspect]
     Active Substance: BECLOMETHASONE DIPROPIONATE
     Indication: Asthma
     Route: 065

REACTIONS (5)
  - Choking [Unknown]
  - Productive cough [Unknown]
  - Chest discomfort [Unknown]
  - Sleep disorder [Unknown]
  - Drug ineffective [Unknown]
